FAERS Safety Report 10559565 (Version 1)
Quarter: 2014Q4

REPORT INFORMATION
  Report Type: Spontaneous
  Country: US (occurrence: None)
  Receive Date: 20141031
  Receipt Date: 20141031
  Transmission Date: 20150529
  Serious: Yes (Other)
  Sender: FDA-Public Use
  Company Number: None

PATIENT
  Age: 63 Year
  Sex: Female
  Weight: 65.77 kg

DRUGS (1)
  1. NAPROXEN. [Suspect]
     Active Substance: NAPROXEN

REACTIONS (8)
  - Cheilitis [None]
  - Lip blister [None]
  - Oral mucosal blistering [None]
  - Lip swelling [None]
  - Skin exfoliation [None]
  - Oral pain [None]
  - Pain [None]
  - Blister [None]

NARRATIVE: CASE EVENT DATE: 20141026
